FAERS Safety Report 8946500 (Version 1)
Quarter: 2012Q4

REPORT INFORMATION
  Report Type: 
  Country: US (occurrence: US)
  Receive Date: 20121204
  Receipt Date: 20121204
  Transmission Date: 20130627
  Serious: No
  Sender: FDA-Public Use
  Company Number: US-AMGEN-USASP2012070733

PATIENT
  Age: 68 Year
  Sex: Male

DRUGS (3)
  1. ENBREL [Suspect]
     Indication: RHEUMATOID ARTHRITIS
     Dosage: 50 mg, qwk
     Dates: start: 200510, end: 201209
  2. HUMIRA [Concomitant]
     Dosage: UNK
  3. CIMZIA [Concomitant]
     Dosage: UNK

REACTIONS (4)
  - Alopecia [Unknown]
  - Stress [Unknown]
  - Condition aggravated [Unknown]
  - Thrombocytopenia [Recovered/Resolved]
